FAERS Safety Report 4384190-5 (Version None)
Quarter: 2004Q2

REPORT INFORMATION
  Report Type: 
  Country: None (occurrence: None)
  Receive Date: 20040623
  Receipt Date: 20040623
  Transmission Date: 20050107
  Serious: Yes (Hospitalization)
  Sender: FDA-Public Use
  Company Number: None

PATIENT
  Age: 87 Year
  Sex: Male
  Weight: 85.2 kg

DRUGS (2)
  1. WARFARIN SODIUM [Suspect]
     Dosage: 3MG DAILY ORAL
     Route: 048
  2. CELEXOXIB 200MG PFIZER [Suspect]
     Dosage: 200MG DAILY ORAL
     Route: 048

REACTIONS (7)
  - BACK PAIN [None]
  - CONFUSIONAL STATE [None]
  - DIZZINESS [None]
  - FAECES DISCOLOURED [None]
  - HAEMATOCRIT DECREASED [None]
  - HAEMOGLOBIN DECREASED [None]
  - LOSS OF CONSCIOUSNESS [None]
